FAERS Safety Report 24937920 (Version 4)
Quarter: 2025Q1

REPORT INFORMATION
  Report Type: Report from Study
  Country: US (occurrence: US)
  Receive Date: 20250206
  Receipt Date: 20250314
  Transmission Date: 20250408
  Serious: Yes (Other)
  Sender: ABBVIE
  Company Number: US-ABBVIE-6114695

PATIENT
  Age: 63 Year
  Sex: Female

DRUGS (4)
  1. HUMIRA [Suspect]
     Active Substance: ADALIMUMAB
     Indication: Rheumatoid arthritis
     Dosage: CITRATE FREE
     Route: 058
     Dates: start: 2022
  2. HUMIRA [Suspect]
     Active Substance: ADALIMUMAB
     Route: 058
  3. TIMOLOL [Concomitant]
     Active Substance: TIMOLOL
     Indication: Eye disorder
     Route: 047
  4. PREDNISONE [Concomitant]
     Active Substance: PREDNISONE
     Indication: Eye disorder
     Route: 047

REACTIONS (8)
  - Blindness [Not Recovered/Not Resolved]
  - Lung disorder [Unknown]
  - Hypertension [Unknown]
  - Eye discharge [Unknown]
  - Rheumatoid arthritis [Not Recovered/Not Resolved]
  - Diabetes mellitus [Not Recovered/Not Resolved]
  - Renal disorder [Unknown]
  - Corneal thinning [Unknown]

NARRATIVE: CASE EVENT DATE: 20240101
